FAERS Safety Report 8138707-5 (Version None)
Quarter: 2012Q1

REPORT INFORMATION
  Report Type: 
  Country: None (occurrence: None)
  Receive Date: 20120215
  Receipt Date: 20101130
  Transmission Date: 20120608
  Serious: Yes (Hospitalization)
  Sender: FDA-Public Use
  Company Number: US-GLAXOSMITHKLINE-A0905172A

PATIENT
  Age: 54 Year
  Sex: Male
  Weight: 107.3 kg

DRUGS (7)
  1. GLUCOPHAGE [Concomitant]
  2. LIPITOR [Concomitant]
  3. AVANDIA [Suspect]
     Indication: TYPE 2 DIABETES MELLITUS
     Dosage: 8MG PER DAY
     Route: 048
  4. NPH INSULIN [Concomitant]
  5. PRINIVIL [Concomitant]
  6. VIOXX [Concomitant]
  7. VOLTAREN [Concomitant]

REACTIONS (2)
  - ARTERIOSCLEROSIS CORONARY ARTERY [None]
  - ISCHAEMIC CARDIOMYOPATHY [None]
